FAERS Safety Report 19000450 (Version 1)
Quarter: 2021Q1

REPORT INFORMATION
  Report Type: Spontaneous
  Country: US (occurrence: US)
  Receive Date: 20210311
  Receipt Date: 20210311
  Transmission Date: 20210420
  Serious: No
  Sender: FDA-Public Use
  Company Number: US-ADAMAS_PHARMACEUTICALS-USA-POI0573202000596

PATIENT
  Age: 67 Year
  Sex: Female

DRUGS (3)
  1. CELEBREX [Concomitant]
     Active Substance: CELECOXIB
     Indication: ARTHRITIS
  2. UNSPECIFIED VITAMIN [Suspect]
     Active Substance: VITAMINS
     Indication: ALOPECIA
     Dates: start: 2019
  3. OSMOLEX ER [Suspect]
     Active Substance: AMANTADINE
     Indication: PARKINSON^S DISEASE
     Dates: start: 2019

REACTIONS (3)
  - Drug ineffective [Not Recovered/Not Resolved]
  - Alopecia [Not Recovered/Not Resolved]
  - Illness [Not Recovered/Not Resolved]

NARRATIVE: CASE EVENT DATE: 2019
